FAERS Safety Report 14559744 (Version 1)
Quarter: 2018Q1

REPORT INFORMATION
  Report Type: Spontaneous
  Country: US (occurrence: US)
  Receive Date: 20180220
  Receipt Date: 20180220
  Transmission Date: 20180509
  Serious: Yes (Hospitalization)
  Sender: FDA-Public Use
  Company Number: None

PATIENT
  Age: 41 Year
  Sex: Female
  Weight: 49.05 kg

DRUGS (8)
  1. TRAMADOL. [Concomitant]
     Active Substance: TRAMADOL
  2. KLONOPIN [Concomitant]
     Active Substance: CLONAZEPAM
  3. COLLAGEN [Concomitant]
     Active Substance: COLLAGEN
  4. MELATONIN [Concomitant]
     Active Substance: MELATONIN
  5. PROZAC [Concomitant]
     Active Substance: FLUOXETINE HYDROCHLORIDE
  6. METHADONE [Suspect]
     Active Substance: METHADONE HYDROCHLORIDE
     Indication: EHLERS-DANLOS SYNDROME
     Route: 048
  7. NAPROXEN. [Concomitant]
     Active Substance: NAPROXEN
  8. CLONIDINE. [Concomitant]
     Active Substance: CLONIDINE

REACTIONS (2)
  - Musculoskeletal disorder [None]
  - Dysgeusia [None]

NARRATIVE: CASE EVENT DATE: 20180207
